FAERS Safety Report 5493602-5 (Version None)
Quarter: 2007Q4

REPORT INFORMATION
  Report Type: 
  Country: None (occurrence: None)
  Receive Date: 20071023
  Receipt Date: 20071009
  Transmission Date: 20080405
  Serious: Yes (Life-Threatening, Hospitalization)
  Sender: FDA-Public Use
  Company Number: GB-RANBAXY-2006RR-03777

PATIENT

DRUGS (7)
  1. SIMVASTATIN [Suspect]
     Indication: HYPERCHOLESTEROLAEMIA
     Dosage: 40 MG, QD
     Route: 048
  2. CLOZAPINE [Suspect]
     Route: 048
     Dates: start: 19951031, end: 20040809
  3. TRITACE [Suspect]
     Indication: HYPERTENSION
     Dosage: 5 MG, BID
     Route: 048
  4. ZAPONEX [Suspect]
     Dosage: UNK, SINGLE
     Route: 048
     Dates: start: 20040810
  5. AMISULPRIDE [Concomitant]
     Indication: SCHIZOPHRENIA
     Dosage: 200 MG, BID
     Dates: start: 20040831, end: 20060225
  6. DISPERSIBLE ASPIRIN 75MG TABLETS BP [Concomitant]
     Indication: PROPHYLAXIS
     Dosage: 75 MG, QD
  7. ATENOLOL TABLETS BP 50MG [Concomitant]
     Indication: HYPERTENSION
     Dosage: 50 MG, BID
     Dates: start: 19951031, end: 20040809

REACTIONS (5)
  - ABDOMINAL DISTENSION [None]
  - DEHYDRATION [None]
  - HYPOTENSION [None]
  - PANCREATITIS [None]
  - RENAL FAILURE ACUTE [None]
